FAERS Safety Report 8488218-2 (Version None)
Quarter: 2012Q3

REPORT INFORMATION
  Report Type: 
  Country: None (occurrence: None)
  Receive Date: 20120705
  Receipt Date: 20120621
  Transmission Date: 20120928
  Serious: Yes (Death, Other)
  Sender: FDA-Public Use
  Company Number: US-ASTELLAS-2012US005794

PATIENT
  Age: 55 Year
  Sex: Male

DRUGS (2)
  1. AMBISOME [Suspect]
     Indication: PROPHYLAXIS
     Dosage: 6.5 MG/KG, WEEKLY
     Route: 042
  2. VORICONAZOLE [Concomitant]
     Indication: PROPHYLAXIS
     Dosage: UNK
     Route: 065

REACTIONS (2)
  - DRUG INEFFECTIVE FOR UNAPPROVED INDICATION [None]
  - RENAL INJURY [None]
